FAERS Safety Report 25745466 (Version 1)
Quarter: 2025Q3

REPORT INFORMATION
  Report Type: Spontaneous
  Country: MA (occurrence: MA)
  Receive Date: 20250901
  Receipt Date: 20250901
  Transmission Date: 20251021
  Serious: Yes (Other)
  Sender: EPIC PHARM
  Company Number: MA-EPICPHARMA-MA-2025EPCLIT01008

PATIENT
  Age: 53 Year
  Sex: Female

DRUGS (2)
  1. LATANOPROST [Suspect]
     Active Substance: LATANOPROST
     Indication: Open angle glaucoma
     Route: 061
  2. AMLODIPINE [Concomitant]
     Active Substance: AMLODIPINE BESYLATE
     Indication: Hypertension
     Route: 065

REACTIONS (4)
  - Hypotony of eye [Recovered/Resolved]
  - Choroidal effusion [Recovered/Resolved]
  - Choroidal detachment [Recovered/Resolved]
  - Spontaneous hyphaema [Recovered/Resolved]
